FAERS Safety Report 8909660 (Version 2)
Quarter: 2012Q4

REPORT INFORMATION
  Report Type: 
  Country: FR (occurrence: FR)
  Receive Date: 20121115
  Receipt Date: 20121127
  Transmission Date: 20130627
  Serious: Yes (Hospitalization)
  Sender: FDA-Public Use
  Company Number: FR-PFIZER INC-2012280610

PATIENT
  Age: 80 Year
  Sex: Female

DRUGS (8)
  1. MEDROL [Suspect]
     Indication: LOIN PAIN
     Dosage: 3 DF of 16mg, 1x/day
     Route: 048
     Dates: start: 20121001, end: 20121011
  2. GALVUS [Interacting]
     Indication: DIABETES MELLITUS NON-INSULIN-DEPENDENT
     Dosage: 50 mg, 1x/day
     Route: 048
     Dates: start: 2008, end: 20121011
  3. STAGID [Interacting]
     Indication: DIABETES MELLITUS NON-INSULIN-DEPENDENT
     Dosage: 700 mg, 3x/day
     Route: 048
     Dates: start: 2008, end: 20121011
  4. APROVEL [Concomitant]
     Indication: HYPERTENSION ARTERIAL
     Dosage: 75 mg, 1x/day
     Route: 048
  5. ISOPTIN [Concomitant]
     Indication: HYPERTENSION
     Dosage: 240 mg, 1x/day
     Route: 048
     Dates: start: 201201
  6. KARDEGIC [Concomitant]
     Indication: CEREBROVASCULAR ACCIDENT NOS
     Dosage: 160 mg, 1x/day
     Route: 048
     Dates: start: 201201
  7. INEXIUM [Concomitant]
     Dosage: enteric-resistant tablet
     Route: 048
     Dates: start: 20121001, end: 20121011
  8. PARACETAMOL [Concomitant]
     Indication: LOIN PAIN
     Dosage: UNK
     Route: 048

REACTIONS (6)
  - Drug interaction [Recovered/Resolved]
  - Diabetes mellitus inadequate control [Recovered/Resolved]
  - Renal failure acute [Recovered/Resolved]
  - Acetonaemia [Recovered/Resolved]
  - Hyperlactacidaemia [Recovered/Resolved]
  - Drug ineffective [Unknown]
